FAERS Safety Report 6034073-X (Version None)
Quarter: 2009Q1

REPORT INFORMATION
  Report Type: 
  Country: None (occurrence: None)
  Receive Date: 20090108
  Receipt Date: 20081107
  Transmission Date: 20090719
  Serious: Yes (Hospitalization, Other)
  Sender: FDA-Public Use
  Company Number: 2008US002612

PATIENT
  Age: 78 Year
  Sex: Female
  Weight: 55.3 kg

DRUGS (4)
  1. AMEVIVE [Suspect]
     Indication: PSORIASIS
     Dosage: 15 MG, WEEKLY, INTRAMUSCULAR
     Route: 030
     Dates: start: 20030909, end: 20030901
  2. PRAVACHOL [Concomitant]
  3. BETAPACE [Concomitant]
  4. LOMOTIL   (DIPHENOXYLATE HYDROCHLORIDE) [Concomitant]

REACTIONS (3)
  - BLADDER CANCER [None]
  - BONE DENSITY DECREASED [None]
  - NEPHROLITHIASIS [None]
